FAERS Safety Report 5460736-0 (Version None)
Quarter: 2007Q3

REPORT INFORMATION
  Report Type: 
  Country: None (occurrence: None)
  Receive Date: 20070919
  Receipt Date: 20070907
  Transmission Date: 20080115
  Serious: Yes (Death)
  Sender: FDA-Public Use
  Company Number: JP-MERCK-0709USA01452

PATIENT
  Age: 83 Year
  Sex: Female

DRUGS (3)
  1. STROMECTOL [Suspect]
     Route: 048
     Dates: start: 20060901, end: 20060901
  2. [THERAPY UNSPECIFIED] [Suspect]
     Route: 065
  3. [THERAPY UNSPECIFIED] [Suspect]
     Route: 065

REACTIONS (2)
  - DISSEMINATED INTRAVASCULAR COAGULATION [None]
  - TOXIC EPIDERMAL NECROLYSIS [None]
